FAERS Safety Report 8196958-8 (Version None)
Quarter: 2012Q1

REPORT INFORMATION
  Report Type: 
  Country: None (occurrence: None)
  Receive Date: 20120309
  Receipt Date: 20120301
  Transmission Date: 20120608
  Serious: Yes (Death, Other)
  Sender: FDA-Public Use
  Company Number: JP-EISAI INC-E7389-01878-SPO-JP

PATIENT
  Age: 54 Year
  Sex: Female
  Weight: 43 kg

DRUGS (1)
  1. HALAVEN [Suspect]
     Indication: BREAST CANCER
     Route: 041
     Dates: start: 20111011, end: 20111011

REACTIONS (2)
  - INTERSTITIAL LUNG DISEASE [None]
  - NEPHRITIS [None]
